FAERS Safety Report 9659155 (Version 1)
Quarter: 2013Q4

REPORT INFORMATION
  Report Type: Spontaneous
  Country: CH (occurrence: CH)
  Receive Date: 20131031
  Receipt Date: 20131031
  Transmission Date: 20140711
  Serious: Yes (Other)
  Sender: FDA-Public Use
  Company Number: CH-009507513-1310CHE011726

PATIENT
  Age: 39 Year
  Sex: Female

DRUGS (5)
  1. REMERON [Suspect]
     Dosage: 10 DOSAGE UNITS, ONCE
     Route: 048
     Dates: start: 20130804, end: 20130804
  2. LORAZEPAM [Suspect]
     Dosage: 10 DOSAGE UNITS, ONCE
     Route: 048
     Dates: start: 20130804, end: 20130804
  3. ESCITALOPRAM [Suspect]
     Dosage: NUMBER OF UNITS UNKNOWN, ONCE
     Route: 048
     Dates: start: 20130804, end: 20130804
  4. TRIMIPRAMINE [Suspect]
     Dosage: 10 DOSAGE UNITS, ONCE
     Route: 048
     Dates: start: 20130804, end: 20130804
  5. ALCOHOL [Suspect]
     Dosage: 2 BOTTLES, ONCE
     Route: 048
     Dates: start: 20130804, end: 20130804

REACTIONS (7)
  - Suicide attempt [Recovered/Resolved]
  - Tachycardia [Recovered/Resolved]
  - Electrocardiogram QT prolonged [Recovered/Resolved]
  - Hypokalaemia [Recovered/Resolved]
  - Agitation [Recovered/Resolved]
  - Somnolence [Recovered/Resolved]
  - Intentional overdose [Unknown]
